FAERS Safety Report 17618582 (Version 5)
Quarter: 2020Q4

REPORT INFORMATION
  Report Type: Spontaneous
  Country: US (occurrence: US)
  Receive Date: 20200402
  Receipt Date: 20201013
  Transmission Date: 20210113
  Serious: Yes (Other)
  Sender: FDA-Public Use
  Company Number: US-FARMAPROD-202003-0359

PATIENT
  Age: 71 Year
  Sex: Male

DRUGS (2)
  1. OXERVATE [Suspect]
     Active Substance: CENEGERMIN-BKBJ
     Indication: HYPOAESTHESIA EYE
     Route: 047
     Dates: start: 20200713, end: 202008
  2. OXERVATE [Suspect]
     Active Substance: CENEGERMIN-BKBJ
     Indication: NEUROTROPHIC KERATOPATHY
     Route: 047
     Dates: start: 20200309, end: 202004

REACTIONS (5)
  - Eye pain [Unknown]
  - Eye disorder [Unknown]
  - Eye operation [Unknown]
  - Eye irritation [Unknown]
  - Eyelid pain [Unknown]

NARRATIVE: CASE EVENT DATE: 20200316
